FAERS Safety Report 16895773 (Version 1)
Quarter: 2019Q4

REPORT INFORMATION
  Report Type: Spontaneous
  Country: US (occurrence: US)
  Receive Date: 20191008
  Receipt Date: 20191008
  Transmission Date: 20200122
  Serious: Yes (Other)
  Sender: FDA-Public Use
  Company Number: US-FRESENIUS KABI-FK201910811

PATIENT

DRUGS (3)
  1. METHOTREXATE. [Suspect]
     Active Substance: METHOTREXATE
     Indication: BREAST CANCER
     Route: 065
     Dates: start: 201812, end: 201904
  2. FLUOROURACIL INJECTION, USP [Suspect]
     Active Substance: FLUOROURACIL
     Indication: BREAST CANCER
     Route: 065
     Dates: start: 201812, end: 201904
  3. CYCLOPHOSPHAMIDE. [Suspect]
     Active Substance: CYCLOPHOSPHAMIDE
     Indication: BREAST CANCER
     Route: 065
     Dates: start: 201812, end: 201904

REACTIONS (7)
  - Acute respiratory failure [Not Recovered/Not Resolved]
  - Deafness [Not Recovered/Not Resolved]
  - Pneumonitis [Not Recovered/Not Resolved]
  - Recalled product administered [Unknown]
  - Leukocyturia [Not Recovered/Not Resolved]
  - Cellulitis [Not Recovered/Not Resolved]
  - Tinnitus [Not Recovered/Not Resolved]
